FAERS Safety Report 6945086-5 (Version None)
Quarter: 2010Q3

REPORT INFORMATION
  Report Type: 
  Country: None (occurrence: None)
  Receive Date: 20100827
  Receipt Date: 20100823
  Transmission Date: 20110219
  Serious: Yes (Death, Hospitalization)
  Sender: FDA-Public Use
  Company Number: FR-WYE-G06538110

PATIENT
  Sex: Female

DRUGS (5)
  1. NOVATREX [Suspect]
     Indication: RHEUMATOID ARTHRITIS
     Dosage: UNKNOWN
     Route: 048
     Dates: start: 20050101
  2. CORDARONE [Suspect]
     Indication: ATRIAL FIBRILLATION
     Dosage: UNKNOWN
     Route: 048
     Dates: start: 20051101
  3. MABTHERA [Suspect]
     Indication: RHEUMATOID ARTHRITIS
     Route: 042
     Dates: start: 20051112, end: 20051213
  4. MABTHERA [Suspect]
     Route: 042
     Dates: start: 20080212, end: 20080212
  5. MABTHERA [Suspect]
     Route: 042
     Dates: start: 20091112, end: 20091126

REACTIONS (2)
  - HYPOXIA [None]
  - PNEUMONIA [None]
